FAERS Safety Report 11253626 (Version 1)
Quarter: 2015Q3

REPORT INFORMATION
  Report Type: Spontaneous
  Country: US (occurrence: None)
  Receive Date: 20150707
  Receipt Date: 20150707
  Transmission Date: 20151125
  Serious: Yes (Life-Threatening, Hospitalization)
  Sender: FDA-Public Use
  Company Number: None

PATIENT
  Age: 41 Year
  Sex: Male
  Weight: 135.17 kg

DRUGS (5)
  1. CENTRUM 50+ MEN MULTIVITAMIN [Concomitant]
  2. INTERNAL HEART MONITOR [Concomitant]
  3. TYLENOL [Concomitant]
     Active Substance: ACETAMINOPHEN
  4. CEFOTETAN [Suspect]
     Active Substance: CEFOTETAN DISODIUM
     Indication: ANTIBIOTIC THERAPY
     Dosage: INTO A VEIN  DOSE UNKNOWN
     Route: 041
     Dates: start: 20150703, end: 20150703
  5. CEFOTETAN [Suspect]
     Active Substance: CEFOTETAN DISODIUM
     Indication: SURGERY
     Dosage: INTO A VEIN  DOSE UNKNOWN
     Route: 041
     Dates: start: 20150703, end: 20150703

REACTIONS (1)
  - Drug hypersensitivity [None]

NARRATIVE: CASE EVENT DATE: 20150703
